FAERS Safety Report 12712173 (Version 2)
Quarter: 2016Q4

REPORT INFORMATION
  Report Type: Report from Study
  Country: US (occurrence: US)
  Receive Date: 20160902
  Receipt Date: 20161028
  Transmission Date: 20170207
  Serious: Yes (Other)
  Sender: FDA-Public Use
  Company Number: US-ASTELLAS-2016US033408

PATIENT
  Age: 62 Year
  Sex: Female
  Weight: 63 kg

DRUGS (3)
  1. BLINDED ERLOTINIB [Suspect]
     Active Substance: ERLOTINIB
     Indication: NON-SMALL CELL LUNG CANCER
     Dosage: 150 MG, ONCE DAILY (LAST ADMINISTERED DOSE ON 16-AUG-2016)
     Route: 048
     Dates: start: 20151028
  2. NOVOLOG [Suspect]
     Active Substance: INSULIN ASPART
     Indication: TYPE 1 DIABETES MELLITUS
     Dosage: PUMP WAS CONTINUOUS AND DOSE CHANGES DURING THE DAY DEPENDING ON ACTIVITIES, MEALS, ETC
     Route: 065
     Dates: start: 2014
  3. NOVOLOG [Suspect]
     Active Substance: INSULIN ASPART
     Dosage: PUMP WAS CONTINUOUS AND DOSE CHANGES DURING THE DAY DEPENDING ON ACTIVITIES, MEALS, ETC
     Route: 065
     Dates: start: 2014

REACTIONS (1)
  - Hypoglycaemia [Recovered/Resolved]

NARRATIVE: CASE EVENT DATE: 20160816
